FAERS Safety Report 12554424 (Version 1)
Quarter: 2016Q3

REPORT INFORMATION
  Report Type: Spontaneous
  Country: US (occurrence: US)
  Receive Date: 20160713
  Receipt Date: 20160713
  Transmission Date: 20161109
  Serious: No
  Sender: FDA-Public Use
  Company Number: US-ROCHE-1588368

PATIENT
  Sex: Male

DRUGS (3)
  1. UROXATRAL [Concomitant]
     Active Substance: ALFUZOSIN HYDROCHLORIDE
  2. BONIVA [Suspect]
     Active Substance: IBANDRONATE SODIUM
     Indication: OSTEOPOROSIS
     Route: 048
  3. PROSCAR [Concomitant]
     Active Substance: FINASTERIDE
     Route: 048

REACTIONS (1)
  - Tooth infection [Not Recovered/Not Resolved]
